FAERS Safety Report 6189029-3 (Version None)
Quarter: 2009Q2

REPORT INFORMATION
  Report Type: 
  Country: None (occurrence: None)
  Receive Date: 20090513
  Receipt Date: 20090506
  Transmission Date: 20091009
  Serious: Yes (Hospitalization, Other)
  Sender: FDA-Public Use
  Company Number: US-ELI_LILLY_AND_COMPANY-US200902004724

PATIENT
  Sex: Female

DRUGS (16)
  1. HUMALOG MIX 75/25 [Suspect]
     Dosage: UNK, AS NEEDED
     Dates: start: 19990101
  2. NOVOLOG MIX 70/30 [Concomitant]
     Dates: start: 20081001
  3. KEFLEX /00145501/ [Concomitant]
     Indication: SKIN LACERATION
     Dosage: 250 MG, EVERY 8 HRS
     Route: 048
  4. DUONEB [Concomitant]
     Indication: RESPIRATORY DISTRESS
     Dosage: UNK, AS NEEDED
  5. OXYGEN [Concomitant]
  6. BUMEX [Concomitant]
     Dosage: 2 MG, 2/D
  7. HEPARIN [Concomitant]
     Indication: THROMBOSIS PROPHYLAXIS
     Dosage: 5000 U, 2/D
     Route: 058
  8. LORA TAB [Concomitant]
     Indication: PAIN
     Dosage: UNK, AS NEEDED
     Route: 048
  9. PREDNISONE [Concomitant]
     Dosage: 10 MG, 2/D
     Route: 048
  10. SYNTHROID [Concomitant]
     Dosage: 112 UG, EACH MORNING
     Route: 048
  11. ZESTRIL [Concomitant]
     Dosage: 5 MG, DAILY (1/D)
     Route: 048
  12. PROTONIX /01263201/ [Concomitant]
     Dosage: 40 MG, DAILY (1/D)
     Route: 048
  13. VENTAVIS [Concomitant]
     Dosage: UNK, UNK
     Route: 055
  14. TRACLEER [Concomitant]
     Dosage: 62.5 MG, QOD
  15. INDERAL [Concomitant]
     Dosage: 5 MG, 2/D
     Route: 048
  16. TETANUS TOXOID [Concomitant]
     Indication: SKIN LACERATION

REACTIONS (10)
  - FALL [None]
  - GAIT DISTURBANCE [None]
  - GASTROINTESTINAL HAEMORRHAGE [None]
  - GOUT [None]
  - HAEMORRHAGIC ANAEMIA [None]
  - HIP FRACTURE [None]
  - HYPOGLYCAEMIA [None]
  - PULMONARY HYPERTENSION [None]
  - RHEUMATOID ARTHRITIS [None]
  - SKIN LACERATION [None]
